FAERS Safety Report 6241740-1 (Version None)
Quarter: 2009Q2

REPORT INFORMATION
  Report Type: 
  Country: None (occurrence: None)
  Receive Date: 20090623
  Receipt Date: 20070430
  Transmission Date: 20091009
  Serious: Yes (Hospitalization, Other)
  Sender: FDA-Public Use
  Company Number: PL-ROCHE-495463

PATIENT
  Age: 63 Year
  Sex: Female

DRUGS (7)
  1. MYCOPHENOLATE MOFETIL [Suspect]
     Route: 065
  2. MYCOPHENOLATE MOFETIL [Suspect]
     Route: 065
  3. MYCOPHENOLATE MOFETIL [Suspect]
     Route: 065
  4. TACROLIMUS [Suspect]
     Dosage: TROUGH BLOOD LEVEL 10.8-13.4NG/ML
     Route: 065
  5. SIMULECT [Concomitant]
     Dosage: DOSE ADMINISTERED ON DAY 0 AND DAY 4
     Route: 065
  6. PREDNISONE [Concomitant]
     Dosage: FOLLOWING HISTOLOGICAL CONFIRMATION OF KAPOSI'S SARCOMA DOSE WAS CHNAGED TO 10MG/DAY.
  7. METHYLPREDNISOLONE [Concomitant]

REACTIONS (2)
  - KAPOSI'S SARCOMA [None]
  - TRANSPLANT REJECTION [None]
